FAERS Safety Report 23885118 (Version 1)
Quarter: 2024Q2

REPORT INFORMATION
  Report Type: Spontaneous
  Country: AU (occurrence: AU)
  Receive Date: 20240522
  Receipt Date: 20240522
  Transmission Date: 20240716
  Serious: Yes (Other)
  Sender: FDA-Public Use
  Company Number: AU-SUN PHARMACEUTICAL INDUSTRIES LTD-2024R1-447206

PATIENT
  Age: 76 Year
  Sex: Female

DRUGS (4)
  1. TETRABENAZINE [Suspect]
     Active Substance: TETRABENAZINE
     Indication: HER2 positive breast cancer
     Dosage: UNK
     Route: 065
  2. TETRABENAZINE [Suspect]
     Active Substance: TETRABENAZINE
     Indication: Breast cancer metastatic
  3. ZOMETA [Suspect]
     Active Substance: ZOLEDRONIC ACID
     Indication: HER2 positive breast cancer
     Dosage: UNK
     Route: 065
     Dates: start: 201806
  4. ZOMETA [Suspect]
     Active Substance: ZOLEDRONIC ACID
     Indication: Breast cancer metastatic

REACTIONS (3)
  - Dyskinesia [Unknown]
  - Lacunar stroke [Unknown]
  - Metastases to meninges [Unknown]

NARRATIVE: CASE EVENT DATE: 20181001
